FAERS Safety Report 7642437-3 (Version None)
Quarter: 2011Q3

REPORT INFORMATION
  Report Type: 
  Country: None (occurrence: None)
  Receive Date: 20110728
  Receipt Date: 20110117
  Transmission Date: 20111222
  Serious: No
  Sender: FDA-Public Use
  Company Number: US-MYLANLABS-2011S1001263

PATIENT
  Sex: Female

DRUGS (4)
  1. LEVOTHYROXINE SODIUM [Suspect]
     Route: 048
     Dates: start: 20101101, end: 20101201
  2. LEVOTHYROXINE SODIUM [Suspect]
     Indication: HYPOTHYROIDISM
     Route: 048
     Dates: start: 20090101, end: 20101201
  3. LEVOTHYROXINE SODIUM [Suspect]
     Route: 048
     Dates: start: 20110101
  4. LEVOTHYROXINE SODIUM [Suspect]
     Route: 048
     Dates: start: 20090101, end: 20101101

REACTIONS (2)
  - WEIGHT INCREASED [None]
  - BLOOD THYROID STIMULATING HORMONE DECREASED [None]
